FAERS Safety Report 9027044 (Version 1)
Quarter: 2013Q1

REPORT INFORMATION
  Report Type: Spontaneous
  Country: US (occurrence: US)
  Receive Date: 20130123
  Receipt Date: 20130123
  Transmission Date: 20140127
  Serious: Yes (Life-Threatening)
  Sender: FDA-Public Use
  Company Number: US-ROXANE LABORATORIES, INC.-2013-RO-00098RO

PATIENT
  Age: 42 Year
  Sex: Female

DRUGS (3)
  1. LITHIUM CARBONATE [Suspect]
     Indication: MAJOR DEPRESSION
     Dosage: 300 MG
  2. LITHIUM CARBONATE [Suspect]
     Dosage: 600 MG
  3. VENLAFAXINE [Suspect]
     Indication: MAJOR DEPRESSION
     Route: 048

REACTIONS (3)
  - Serotonin syndrome [Recovered/Resolved]
  - Leukocytosis [Unknown]
  - Blood creatine phosphokinase increased [Unknown]
